FAERS Safety Report 15696975 (Version 2)
Quarter: 2018Q4

REPORT INFORMATION
  Report Type: Report from Study
  Country: US (occurrence: US)
  Receive Date: 20181206
  Receipt Date: 20181219
  Transmission Date: 20190205
  Serious: Yes (Hospitalization, Other)
  Sender: FDA-Public Use
  Company Number: US-MALLINCKRODT-T201805224

PATIENT
  Age: 80 Year
  Sex: Male

DRUGS (1)
  1. REPOSITORY CORTICOTROPIN INJECTION [Suspect]
     Active Substance: CORTICOTROPIN
     Indication: NEPHROTIC SYNDROME
     Dosage: 40 UNITS, X4 DOSES (THEN 80 UNITS TWICE WEEKLY (THURSDAY AND MONDAY))
     Route: 058
     Dates: start: 20181101, end: 20181112

REACTIONS (3)
  - Pleural effusion [Recovering/Resolving]
  - Blood pressure increased [Recovering/Resolving]
  - Pneumonia [Recovering/Resolving]

NARRATIVE: CASE EVENT DATE: 201811
